FAERS Safety Report 9156746 (Version 1)
Quarter: 2013Q1

REPORT INFORMATION
  Report Type: Spontaneous
  Country: DE (occurrence: None)
  Receive Date: 20130211
  Receipt Date: 20130211
  Transmission Date: 20140127
  Serious: Yes (Hospitalization)
  Sender: FDA-Public Use
  Company Number: VAL_01386_2013

PATIENT
  Sex: Male

DRUGS (11)
  1. METOPROLOL (METOPROLOL-METOPROLOL TARTRATE) [Suspect]
     Indication: PRODUCT USED FOR UNKNOWN INDICATION
     Route: 048
     Dates: start: 20130126
  2. METFORMIN (METFORMIN) [Suspect]
     Indication: PRODUCT USED FOR UNKNOWN INDICATION
     Dosage: (DF)
     Route: 048
     Dates: start: 20130126
  3. TORASEMIDE [Suspect]
     Indication: PRODUCT USED FOR UNKNOWN INDICATION
     Dosage: (DF REGIMEN #1)
     Route: 048
  4. ALLOPURINOL [Suspect]
     Indication: PRODUCT USED FOR UNKNOWN INDICATION
     Dosage: (DF REGIMEN #1)
     Route: 048
     Dates: start: 20130126
  5. ENALAPRIL [Suspect]
     Indication: PRODUCT USED FOR UNKNOWN INDICATION
     Dosage: (DF REGIMEN #1)
     Route: 048
     Dates: start: 20130126
  6. ACETYLCYSTEINE [Suspect]
     Indication: PRODUCT USED FOR UNKNOWN INDICATION
     Dosage: (DF REGIMEN #1)
     Route: 048
     Dates: start: 20130126
  7. PRAVASTATIN [Suspect]
     Indication: PRODUCT USED FOR UNKNOWN INDICATION
     Dosage: (DF REGIMEN #1)
     Route: 048
     Dates: start: 20130126
  8. ZANERIL [Suspect]
     Indication: PRODUCT USED FOR UNKNOWN INDICATION
     Dosage: (DF REGIMEN #1)
     Route: 048
     Dates: start: 20130126
  9. AAS [Suspect]
     Indication: PRODUCT USED FOR UNKNOWN INDICATION
     Dosage: (DF REGIMEN #1)
     Route: 048
     Dates: start: 20130126
  10. GLIMEPIRIDE [Suspect]
     Indication: PRODUCT USED FOR UNKNOWN INDICATION
     Dosage: (DF REGIMEN #1)
     Route: 048
     Dates: start: 20130126
  11. ETHANOL (ETHANOL) (UNKNOWN) (ETHANOL) [Suspect]
     Indication: PRODUCT USED FOR UNKNOWN INDICATION
     Dosage: (20 BOTTLES OF BEER AND WINE REGIMEN #1)
     Route: 048

REACTIONS (2)
  - Alcohol poisoning [None]
  - Drug abuse [None]
